FAERS Safety Report 5873072-5 (Version None)
Quarter: 2008Q3

REPORT INFORMATION
  Report Type: 
  Country: None (occurrence: None)
  Receive Date: 20080903
  Receipt Date: 20080818
  Transmission Date: 20090109
  Serious: Yes (Hospitalization)
  Sender: FDA-Public Use
  Company Number: 8035597

PATIENT
  Age: 34 Year
  Sex: Male

DRUGS (2)
  1. CIMZIA [Suspect]
     Indication: CROHN'S DISEASE
     Dosage: SC
     Route: 058
  2. CIMZIA [Suspect]
     Indication: CROHN'S DISEASE
     Dosage: SC
     Route: 058
     Dates: start: 20080724

REACTIONS (2)
  - GASTROINTESTINAL HAEMORRHAGE [None]
  - LARGE INTESTINAL HAEMORRHAGE [None]
